FAERS Safety Report 12076519 (Version 6)
Quarter: 2016Q3

REPORT INFORMATION
  Report Type: Report from Study
  Country: JP (occurrence: JP)
  Receive Date: 20160215
  Receipt Date: 20160909
  Transmission Date: 20161109
  Serious: Yes (Other)
  Sender: FDA-Public Use
  Company Number: PHJP2016JP002763

PATIENT
  Age: 35 Year
  Sex: Male
  Weight: 60 kg

DRUGS (8)
  1. FARYDAK [Suspect]
     Active Substance: PANOBINOSTAT
     Dosage: 20 UNK, TOTAL 6 TIMES
     Route: 048
     Dates: start: 20151130
  2. FARYDAK [Suspect]
     Active Substance: PANOBINOSTAT
     Dosage: 20 MG, TOTAL 6 TIMES
     Route: 048
     Dates: start: 20151228, end: 20160117
  3. DEXAMETHASONE. [Concomitant]
     Active Substance: DEXAMETHASONE
     Route: 065
     Dates: start: 20151228, end: 20160117
  4. BORTEZOMIB [Concomitant]
     Active Substance: BORTEZOMIB
     Indication: PLASMA CELL MYELOMA
     Dosage: 1.3 MG/M2, QW2
     Route: 058
     Dates: start: 20151109, end: 20151217
  5. BORTEZOMIB [Concomitant]
     Active Substance: BORTEZOMIB
     Dosage: 0.7 MG/M2, QW2
     Route: 058
     Dates: start: 20151228, end: 20160117
  6. DEXAMETHASONE. [Concomitant]
     Active Substance: DEXAMETHASONE
     Indication: PLASMA CELL MYELOMA
     Dosage: 20 MG, UNK
     Route: 065
     Dates: start: 20151109, end: 20160117
  7. DORIPENEM [Concomitant]
     Active Substance: DORIPENEM
     Indication: PRODUCT USED FOR UNKNOWN INDICATION
     Route: 065
  8. FARYDAK [Suspect]
     Active Substance: PANOBINOSTAT
     Indication: PLASMA CELL MYELOMA
     Dosage: 20 MG, QW3
     Route: 048
     Dates: start: 20151109, end: 20151217

REACTIONS (9)
  - Diarrhoea [Recovered/Resolved]
  - Blood potassium decreased [Unknown]
  - Ileus [Recovered/Resolved]
  - Platelet count decreased [Recovered/Resolved]
  - Haemoglobin decreased [Unknown]
  - Therapeutic response decreased [Unknown]
  - Neutrophil count decreased [Recovered/Resolved]
  - Blood lactate dehydrogenase increased [Unknown]
  - Corynebacterium infection [Recovered/Resolved]

NARRATIVE: CASE EVENT DATE: 20151120
